FAERS Safety Report 8325345-4 (Version None)
Quarter: 2012Q2

REPORT INFORMATION
  Report Type: 
  Country: None (occurrence: None)
  Receive Date: 20120427
  Receipt Date: 20120419
  Transmission Date: 20120825
  Serious: Yes (Death, Hospitalization, Other)
  Sender: FDA-Public Use
  Company Number: WAES 1202USA01116

PATIENT
  Age: 79 Year
  Sex: Female

DRUGS (15)
  1. ASPIRIN [Concomitant]
  2. MAGNESIUM (UNSPECIFIED) [Concomitant]
  3. NITROGLYCERIN [Concomitant]
  4. PLACEBO [Suspect]
     Indication: ACUTE CORONARY SYNDROME
     Dosage: PO
     Dates: start: 20061019, end: 20120125
  5. HYDROCHLOROTHIAZIDE [Concomitant]
  6. TORSEMIDE [Concomitant]
  7. IRBESARTAN [Concomitant]
  8. PAROXETINE [Concomitant]
  9. ZOLPIDEM TARTRATE [Concomitant]
  10. NORVASC [Concomitant]
  11. VYTORIN [Suspect]
     Indication: ACUTE CORONARY SYNDROME
     Dosage: 10-40 MG/DAILY, PO
     Route: 048
     Dates: start: 20061019, end: 20120125
  12. PLACEBO [Suspect]
     Indication: ACUTE CORONARY SYNDROME
     Dosage: PO
     Route: 048
     Dates: start: 20061019, end: 20120125
  13. INSULIN [Concomitant]
  14. METFORMIN HCL [Concomitant]
  15. MOXONIDINE [Concomitant]

REACTIONS (1)
  - LUNG ADENOCARCINOMA [None]
